FAERS Safety Report 7330863-1 (Version None)
Quarter: 2011Q1

REPORT INFORMATION
  Report Type: 
  Country: None (occurrence: None)
  Receive Date: 20110304
  Receipt Date: 20110228
  Transmission Date: 20110831
  Serious: No
  Sender: FDA-Public Use
  Company Number: US-PFIZER INC-2011044435

PATIENT
  Sex: Female
  Weight: 55.8 kg

DRUGS (1)
  1. ESTRING [Suspect]
     Indication: VULVOVAGINAL DRYNESS
     Dosage: UNK
     Route: 067
     Dates: start: 20061001

REACTIONS (2)
  - VULVOVAGINAL BURNING SENSATION [None]
  - GENITAL BURNING SENSATION [None]
